FAERS Safety Report 20613305 (Version 1)
Quarter: 2022Q1

REPORT INFORMATION
  Report Type: Spontaneous
  Country: PT (occurrence: PT)
  Receive Date: 20220318
  Receipt Date: 20220318
  Transmission Date: 20220423
  Serious: Yes (Death, Life-Threatening, Other)
  Sender: FDA-Public Use
  Company Number: PT-AMGEN-PRTSP2022045939

PATIENT

DRUGS (6)
  1. PEGFILGRASTIM [Suspect]
     Active Substance: PEGFILGRASTIM
     Indication: Prophylaxis
     Route: 065
  2. FILGRASTIM [Suspect]
     Active Substance: FILGRASTIM
     Indication: Prophylaxis
     Route: 065
  3. CISPLATIN [Concomitant]
     Active Substance: CISPLATIN
  4. DOCETAXEL [Concomitant]
     Active Substance: DOCETAXEL
  5. FLUOROURACIL [Concomitant]
     Active Substance: FLUOROURACIL
  6. CIPROFLOXACIN [Concomitant]
     Active Substance: CIPROFLOXACIN

REACTIONS (7)
  - Death [Fatal]
  - Mucosal inflammation [Unknown]
  - Neutropenia [Unknown]
  - Infection [Unknown]
  - Septic shock [Unknown]
  - Head and neck cancer [Unknown]
  - Therapy partial responder [Unknown]
